FAERS Safety Report 7342691 (Version 4)
Quarter: 2012Q4

REPORT INFORMATION
  Report Type: Report from Study
  Country: US (occurrence: US)
  Receive Date: 20100402
  Receipt Date: 20121112
  Transmission Date: 20130627
  Serious: Yes (Other)
  Sender: FDA-Public Use
  Company Number: US-BAXTER-2010BH008073

PATIENT
  Age: 59 Year
  Sex: Male
  Weight: 100 kg

DRUGS (12)
  1. ARICEPT [Concomitant]
     Indication: ALZHEIMER^S DISEASE
     Route: 048
     Dates: start: 200905
  2. NAMENDA [Concomitant]
     Indication: ALZHEIMER^S DISEASE
     Route: 048
     Dates: start: 200907
  3. TADALAFIL [Concomitant]
     Indication: ERECTILE DYSFUNCTION
     Route: 048
     Dates: start: 200808
  4. VITAMIN B12 [Concomitant]
     Indication: VITAMIN SUPPLEMENTATION
     Route: 048
     Dates: start: 200905
  5. IBUPROFEN [Concomitant]
     Indication: ARTHRITIC PAINS
     Route: 048
     Dates: start: 1999
  6. ALKA-SELTZER PLUS [Concomitant]
     Indication: CONGESTION NASAL
     Route: 048
     Dates: start: 1999
  7. FOLIC ACID W/VITAMIN B12 [Concomitant]
     Indication: VITAMIN SUPPLEMENTATION
     Route: 048
     Dates: start: 200905
  8. SIMVASTATIN [Concomitant]
     Indication: HYPERLIPIDEMIA
     Route: 048
     Dates: start: 20091113
  9. CORTISONE [Concomitant]
     Indication: ITCHY RASH
     Route: 061
     Dates: start: 20100106, end: 20100108
  10. TYLENOL [Concomitant]
     Indication: HEADACHE
     Route: 048
     Dates: start: 20100301
  11. GAMMAGARD LIQUID [Suspect]
     Indication: ALZHEIMER^S DISEASE
     Route: 042
     Dates: start: 20100315
  12. GAMMAGARD LIQUID [Suspect]
     Route: 042
     Dates: start: 20100215, end: 20100215

REACTIONS (1)
  - Vasogenic cerebral oedema [Recovered/Resolved]
